FAERS Safety Report 9306418 (Version 1)
Quarter: 2013Q2

REPORT INFORMATION
  Report Type: Spontaneous
  Country: US (occurrence: US)
  Receive Date: 20130523
  Receipt Date: 20130523
  Transmission Date: 20140414
  Serious: Yes (Other)
  Sender: FDA-Public Use
  Company Number: US-TEVA-407184USA

PATIENT
  Age: 65 Year
  Sex: Female

DRUGS (1)
  1. VENLAFAXINE [Suspect]
     Indication: DEPRESSION

REACTIONS (6)
  - Movement disorder [Unknown]
  - Activities of daily living impaired [Unknown]
  - Memory impairment [Unknown]
  - Dysarthria [Unknown]
  - Alopecia [Unknown]
  - Dyspnoea [Unknown]
